FAERS Safety Report 8882972 (Version 2)
Quarter: 2013Q1

REPORT INFORMATION
  Report Type: Spontaneous
  Country: CA (occurrence: CA)
  Receive Date: 20121102
  Receipt Date: 20130116
  Transmission Date: 20140127
  Serious: Yes (Death, Other)
  Sender: FDA-Public Use
  Company Number: PHHY2012CA082909

PATIENT
  Age: 58 Year
  Sex: Female

DRUGS (2)
  1. SANDOSTATIN LAR [Suspect]
     Indication: OVARIAN CANCER
     Dosage: 30 MG,ONCE A MONTH
     Route: 030
     Dates: start: 20120225, end: 20120917
  2. SANDOSTATIN LAR [Suspect]
     Indication: GASTROINTESTINAL OBSTRUCTION

REACTIONS (3)
  - Death [Fatal]
  - Oedema peripheral [Unknown]
  - Abdominal distension [Unknown]
